FAERS Safety Report 9628256 (Version 1)
Quarter: 2013Q4

REPORT INFORMATION
  Report Type: Report from Study
  Country: GB (occurrence: GB)
  Receive Date: 20131017
  Receipt Date: 20131017
  Transmission Date: 20140711
  Serious: Yes (Hospitalization)
  Sender: FDA-Public Use
  Company Number: GB-ROCHE-1289347

PATIENT
  Sex: Female
  Weight: 80 kg

DRUGS (2)
  1. TOCILIZUMAB [Suspect]
     Indication: RHEUMATOID ARTHRITIS
     Dosage: LAST DOSE PRIOR TO SAE ON 12/JUN/2013.
     Route: 065
     Dates: start: 20111014
  2. SALAZOPRIN [Concomitant]

REACTIONS (1)
  - Skin ulcer [Unknown]
